FAERS Safety Report 4556328-8 (Version None)
Quarter: 2005Q1

REPORT INFORMATION
  Report Type: 
  Country: None (occurrence: None)
  Receive Date: 20050103
  Receipt Date: 20040819
  Transmission Date: 20050727
  Serious: Yes (Other)
  Sender: FDA-Public Use
  Company Number: 2004UW17686

PATIENT
  Age: 74 Year
  Sex: Male
  Weight: 74.8435 kg

DRUGS (6)
  1. CRESTOR [Suspect]
     Indication: BLOOD CHOLESTEROL INCREASED
     Dosage: 10 MG  DAILY  PO
     Route: 048
     Dates: start: 20040201, end: 20040815
  2. CRESTOR [Suspect]
     Indication: BLOOD CHOLESTEROL INCREASED
     Dosage: 20 MG DAILY PO
     Route: 048
     Dates: start: 20040816
  3. ASPIRIN [Concomitant]
  4. PRILOSEC [Concomitant]
  5. VITAMINS NOS [Concomitant]
  6. B50 [Concomitant]

REACTIONS (2)
  - BACK PAIN [None]
  - TESTICULAR PAIN [None]
